FAERS Safety Report 9908826 (Version 1)
Quarter: 2014Q1

REPORT INFORMATION
  Report Type: Spontaneous
  Country: SE (occurrence: None)
  Receive Date: 20140212
  Receipt Date: 20140212
  Transmission Date: 20141002
  Serious: Yes (Death)
  Sender: FDA-Public Use
  Company Number: 2014P1000931

PATIENT
  Age: 71 Year
  Sex: Female

DRUGS (2)
  1. CITALOPRAM [Suspect]
     Dosage: UNKNOWN-UNKNOWN
  2. ZOPICLONE [Suspect]
     Dosage: UNKNOWN-UNKNOWN

REACTIONS (1)
  - Completed suicide [None]
